FAERS Safety Report 4309712-1 (Version None)
Quarter: 2004Q1

REPORT INFORMATION
  Report Type: 
  Country: None (occurrence: None)
  Receive Date: 20040301
  Receipt Date: 20040223
  Transmission Date: 20041129
  Serious: Yes (Life-Threatening)
  Sender: FDA-Public Use
  Company Number: 200410206BVD

PATIENT
  Age: 35 Year
  Sex: Female
  Weight: 100 kg

DRUGS (2)
  1. ASPIRIN [Suspect]
     Indication: PYREXIA
     Dosage: NI, NI; ORAL
     Route: 048
     Dates: start: 20031201
  2. SURGAM (TIAPROFENIC ACID) [Suspect]
     Indication: PAIN
     Dosage: NI, NI; ORAL
     Route: 048
     Dates: start: 20031114, end: 20031128

REACTIONS (5)
  - AGRANULOCYTOSIS [None]
  - PNEUMONIA BACTERIAL [None]
  - PYREXIA [None]
  - SEPSIS [None]
  - SHOCK [None]
